FAERS Safety Report 20081243 (Version 1)
Quarter: 2021Q4

REPORT INFORMATION
  Report Type: Spontaneous
  Country: US (occurrence: None)
  Receive Date: 20211116
  Receipt Date: 20211116
  Transmission Date: 20220303
  Serious: No
  Sender: FDA-Public Use
  Company Number: None

PATIENT
  Age: 53 Year
  Sex: Female

DRUGS (1)
  1. MYCOPHENOLATE MOFETIL [Suspect]
     Active Substance: MYCOPHENOLATE MOFETIL
     Indication: Renal transplant
     Dosage: OTHER QUANTITY : 2 CAPS;?FREQUENCY : TWICE A DAY;?
     Route: 048
     Dates: start: 201604

REACTIONS (2)
  - Urinary tract infection [None]
  - Escherichia infection [None]

NARRATIVE: CASE EVENT DATE: 20211024
